FAERS Safety Report 6742220-7 (Version None)
Quarter: 2010Q2

REPORT INFORMATION
  Report Type: 
  Country: None (occurrence: None)
  Receive Date: 20100526
  Receipt Date: 20100525
  Transmission Date: 20101027
  Serious: Yes (Life-Threatening, Hospitalization, Other)
  Sender: FDA-Public Use
  Company Number: GXKR2010DE05694

PATIENT
  Age: 57 Year
  Sex: Male
  Weight: 50 kg

DRUGS (10)
  1. DOXEPIN 1A PHARMA (NGX) [Suspect]
     Indication: DEPRESSION
     Dosage: 25 MG, QD
     Route: 048
     Dates: start: 20080101, end: 20100418
  2. CITALOPRAM 1A PHARMA (NGX) [Suspect]
     Indication: DEPRESSION
     Dosage: 20 MG, QD
     Route: 048
     Dates: start: 20080101
  3. BISO LICH [Suspect]
     Dosage: 5 MG, QD
     Route: 048
     Dates: start: 20000101
  4. ASPIRIN [Concomitant]
     Route: 048
  5. RAMILICH COMP [Concomitant]
     Route: 048
  6. MOLSIDOMINE [Concomitant]
     Dosage: 8 MG, UNK
     Route: 048
  7. ISDN ^ALIUD PHARMA^ [Concomitant]
     Route: 048
  8. PRAVASTATIN [Concomitant]
     Route: 048
  9. OMEPRAZOLE [Concomitant]
     Route: 048
  10. DICLOFENAC ^RATIOPHARM^ [Concomitant]
     Indication: MUSCULOSKELETAL PAIN
     Route: 048

REACTIONS (1)
  - LONG QT SYNDROME [None]
